FAERS Safety Report 8105590-3 (Version None)
Quarter: 2012Q1

REPORT INFORMATION
  Report Type: 
  Country: None (occurrence: None)
  Receive Date: 20120201
  Receipt Date: 20120131
  Transmission Date: 20120608
  Serious: No
  Sender: FDA-Public Use
  Company Number: US-PFIZER INC-2012026804

PATIENT
  Sex: Male
  Weight: 70 kg

DRUGS (7)
  1. IBUPROFEN [Concomitant]
     Dosage: 100 MG, 1X/DAY
  2. PRILOSEC [Concomitant]
     Dosage: 1 MG, 1X/DAY
  3. CYMBALTA [Concomitant]
     Dosage: 60 MG, 1X/DAY
  4. CHANTIX [Suspect]
     Indication: SMOKING CESSATION THERAPY
     Dosage: 1 MG, 2X/DAY
     Route: 048
     Dates: start: 20120128
  5. ANTABUSE [Concomitant]
     Dosage: 250 MG, 1X/DAY
  6. LEVOTHYROXINE [Concomitant]
     Indication: HYPOTHYROIDISM
     Dosage: 1 MG, 1X/DAY
  7. KLONOPIN [Concomitant]
     Dosage: 1 MG, 3X/DAY

REACTIONS (1)
  - NAUSEA [None]
